FAERS Safety Report 4530626-6 (Version None)
Quarter: 2004Q4

REPORT INFORMATION
  Report Type: 
  Country: None (occurrence: None)
  Receive Date: 20041216
  Receipt Date: 20041130
  Transmission Date: 20050328
  Serious: Yes (Other)
  Sender: FDA-Public Use
  Company Number: GBS040915629

PATIENT
  Age: 11 Year
  Sex: Female
  Weight: 39 kg

DRUGS (2)
  1. HUMALOG [Suspect]
     Indication: DIABETES MELLITUS INSULIN-DEPENDENT
     Dosage: 31 U DAY
     Dates: start: 20040822, end: 20040824
  2. NOVOMIX [Concomitant]

REACTIONS (5)
  - DIPLOPIA [None]
  - EYE PAIN [None]
  - PHOTOPHOBIA [None]
  - READING DISORDER [None]
  - VISION BLURRED [None]
